FAERS Safety Report 24357436 (Version 1)
Quarter: 2024Q3

REPORT INFORMATION
  Report Type: Spontaneous
  Country: US (occurrence: US)
  Receive Date: 20240924
  Receipt Date: 20240924
  Transmission Date: 20241016
  Serious: Yes (Other)
  Sender: CELLTRION
  Company Number: US-CELLTRION INC.-2023US017207

PATIENT

DRUGS (5)
  1. INFLIXIMAB [Suspect]
     Active Substance: INFLIXIMAB
     Indication: Crohn^s disease
     Dosage: 10 MILLIGRAM/KILOGRAM (FIRST INFUSION)
  2. INFLIXIMAB [Suspect]
     Active Substance: INFLIXIMAB
     Dosage: FOURTH INFUSION
  3. INFLIXIMAB [Suspect]
     Active Substance: INFLIXIMAB
     Dosage: FIFTH INFUSION
  4. DIPHENHYDRAMINE [Concomitant]
     Active Substance: DIPHENHYDRAMINE
     Indication: Premedication
     Dosage: UNK
  5. ACETAMINOPHEN [Concomitant]
     Active Substance: ACETAMINOPHEN
     Indication: Premedication
     Dosage: UNK

REACTIONS (5)
  - Pruritus [Recovered/Resolved]
  - Pruritus [Recovered/Resolved]
  - Urticaria chronic [Recovered/Resolved]
  - Urticaria [Recovered/Resolved]
  - Overdose [Unknown]
